FAERS Safety Report 5194210-6 (Version None)
Quarter: 2006Q4

REPORT INFORMATION
  Report Type: 
  Country: None (occurrence: None)
  Receive Date: 20061228
  Receipt Date: 20061206
  Transmission Date: 20070319
  Serious: Yes (Hospitalization, Disabling, Other)
  Sender: FDA-Public Use
  Company Number: BR-PFIZER INC-2006151400

PATIENT
  Sex: Female

DRUGS (4)
  1. XALATAN [Suspect]
     Indication: GLAUCOMA
  2. TIMOLOL MALEATE [Concomitant]
  3. LISINOPRIL [Concomitant]
  4. ATENOL [Concomitant]
     Route: 048

REACTIONS (11)
  - BACK PAIN [None]
  - BLINDNESS [None]
  - CHEST PAIN [None]
  - DRUG INEFFECTIVE [None]
  - EYE DISORDER [None]
  - EYE LASER SURGERY [None]
  - EYE PAIN [None]
  - EYE PRURITUS [None]
  - GLAUCOMA [None]
  - INTRAOCULAR PRESSURE INCREASED [None]
  - VISION BLURRED [None]
